FAERS Safety Report 6492061-3 (Version None)
Quarter: 2009Q4

REPORT INFORMATION
  Report Type: 
  Country: None (occurrence: None)
  Receive Date: 20091125
  Receipt Date: 20090604
  Transmission Date: 20100525
  Serious: Yes (Other)
  Sender: FDA-Public Use
  Company Number: 2009BH009591

PATIENT
  Age: 59 Year
  Sex: Female

DRUGS (20)
  1. DIANEAL [Suspect]
     Indication: PERITONEAL DIALYSIS
     Dosage: 10.5 L ; EVERY DAY ; IP
     Route: 033
     Dates: start: 20080601, end: 20090319
  2. EPOGEN [Concomitant]
  3. SEPTRA [Concomitant]
  4. SOMA [Concomitant]
  5. RESTORIL [Concomitant]
  6. HYDROCODONE [Concomitant]
  7. PROFERRIN [Concomitant]
  8. FOLIC ACID [Concomitant]
  9. RENVELA [Concomitant]
  10. SODIUM BICARBONATE [Concomitant]
  11. ZANTAC [Concomitant]
  12. ZOCOR [Concomitant]
  13. LEVOTHYROXINE SODIUM [Concomitant]
  14. LOVASA [Concomitant]
  15. RENAL TABS [Concomitant]
  16. EFFEXOR [Concomitant]
  17. PHENERGAN HCL [Concomitant]
  18. COUMADIN [Concomitant]
  19. ALLOPURINOL [Concomitant]
  20. COLCHICINE [Concomitant]

REACTIONS (2)
  - PERITONEAL DIALYSIS COMPLICATION [None]
  - PERITONITIS BACTERIAL [None]
